FAERS Safety Report 5269351-5 (Version None)
Quarter: 2007Q1

REPORT INFORMATION
  Report Type: 
  Country: None (occurrence: None)
  Receive Date: 20070319
  Receipt Date: 20070307
  Transmission Date: 20070707
  Serious: Yes (Other)
  Sender: FDA-Public Use
  Company Number: FR-PFIZER INC-2007018334

PATIENT
  Sex: Male

DRUGS (2)
  1. ALDACTONE [Suspect]
     Dates: start: 20070201, end: 20070201
  2. LASIX [Concomitant]

REACTIONS (3)
  - ECCHYMOSIS [None]
  - PURPURA [None]
  - THROMBOCYTOPENIA [None]
